FAERS Safety Report 14845270 (Version 1)
Quarter: 2018Q2

REPORT INFORMATION
  Report Type: Report from Study
  Country: US (occurrence: US)
  Receive Date: 20180504
  Receipt Date: 20180504
  Transmission Date: 20180711
  Serious: Yes (Other)
  Sender: FDA-Public Use
  Company Number: PHEH2018US016461

PATIENT

DRUGS (2)
  1. RYDAPT [Suspect]
     Active Substance: MIDOSTAURIN
     Indication: SYSTEMIC MASTOCYTOSIS
     Route: 065
  2. GLEEVEC [Suspect]
     Active Substance: IMATINIB MESYLATE
     Indication: SYSTEMIC MASTOCYTOSIS
     Route: 065

REACTIONS (7)
  - Platelet count decreased [Unknown]
  - Systemic mastocytosis [Unknown]
  - Anaemia [Unknown]
  - Gastrointestinal disorder [Unknown]
  - Malignant neoplasm progression [Unknown]
  - Splenomegaly [Unknown]
  - Thrombocytopenia [Unknown]
